FAERS Safety Report 12982918 (Version 1)
Quarter: 2016Q4

REPORT INFORMATION
  Report Type: Spontaneous
  Country: US (occurrence: US)
  Receive Date: 20161129
  Receipt Date: 20161129
  Transmission Date: 20170207
  Serious: No
  Sender: FDA-Public Use
  Company Number: US-MALLINCKRODT-T201505390

PATIENT
  Age: 66 Year
  Sex: Female
  Weight: 76 kg

DRUGS (18)
  1. PREDNISONE. [Concomitant]
     Active Substance: PREDNISONE
  2. AMITRIPTYLINE [Concomitant]
     Active Substance: AMITRIPTYLINE
  3. GABAPENTIN. [Concomitant]
     Active Substance: GABAPENTIN
  4. OMEGA 3 [Concomitant]
     Active Substance: OMEGA-3 FATTY ACIDS
  5. FENTANYL TRANSDERMAL SYSTEM [Suspect]
     Active Substance: FENTANYL
     Indication: FIBROMYALGIA
     Dosage: 100 MCG/HR EVERY 72 HOURS/EVERY THIRD DAY
     Route: 062
     Dates: start: 2015
  6. DICYCLOMINE [Concomitant]
     Active Substance: DICYCLOMINE HYDROCHLORIDE
     Dosage: AS NEEDED
  7. FENTANYL TRANSDERMAL SYSTEM [Suspect]
     Active Substance: FENTANYL
     Indication: OSTEOPOROSIS
  8. CALCIUM CARBONATE. [Concomitant]
     Active Substance: CALCIUM CARBONATE
  9. VITAMIN D3 [Concomitant]
     Active Substance: CHOLECALCIFEROL
  10. LEVOTHROID [Concomitant]
     Active Substance: LEVOTHYROXINE SODIUM
  11. MEGACE [Concomitant]
     Active Substance: MEGESTROL ACETATE
     Dosage: ONCE WEEKLY
  12. BUDESONIDE. [Concomitant]
     Active Substance: BUDESONIDE
  13. PEPCID [Concomitant]
     Active Substance: FAMOTIDINE
  14. METOPROLOL. [Concomitant]
     Active Substance: METOPROLOL
  15. L-LYSINE [Concomitant]
     Active Substance: LYSINE
  16. WARFARIN [Concomitant]
     Active Substance: WARFARIN
  17. FENTANYL TRANSDERMAL SYSTEM [Suspect]
     Active Substance: FENTANYL
     Indication: PAIN
  18. FORMOTEROL [Concomitant]
     Active Substance: FORMOTEROL

REACTIONS (3)
  - Restless legs syndrome [Recovered/Resolved]
  - Drug withdrawal syndrome [Recovered/Resolved]
  - Drug effect decreased [Recovered/Resolved]

NARRATIVE: CASE EVENT DATE: 20151119
